FAERS Safety Report 7818991-5 (Version None)
Quarter: 2011Q4

REPORT INFORMATION
  Report Type: 
  Country: None (occurrence: None)
  Receive Date: 20111018
  Receipt Date: 20111006
  Transmission Date: 20120403
  Serious: No
  Sender: FDA-Public Use
  Company Number: US-JNJFOC-20110905593

PATIENT
  Age: 65 Year
  Sex: Female

DRUGS (5)
  1. DURAGESIC-100 [Suspect]
     Indication: PRODUCT USED FOR UNKNOWN INDICATION
     Route: 062
  2. TYLENOL-500 [Concomitant]
     Route: 065
  3. INSULIN [Concomitant]
     Route: 065
  4. QUETIAPINE [Concomitant]
     Route: 065
  5. METOPROLOL TARTRATE [Concomitant]
     Route: 065

REACTIONS (5)
  - WRONG TECHNIQUE IN DRUG USAGE PROCESS [None]
  - WITHDRAWAL SYNDROME [None]
  - PRODUCT QUALITY ISSUE [None]
  - PRODUCT COLOUR ISSUE [None]
  - PRODUCT PACKAGING ISSUE [None]
